FAERS Safety Report 5124472-2 (Version None)
Quarter: 2006Q4

REPORT INFORMATION
  Report Type: 
  Country: None (occurrence: None)
  Receive Date: 20061006
  Receipt Date: 20061002
  Transmission Date: 20070319
  Serious: Yes (Hospitalization)
  Sender: FDA-Public Use
  Company Number: B0440819A

PATIENT
  Age: 82 Year
  Sex: Male

DRUGS (9)
  1. COREG [Suspect]
     Dosage: ORAL
     Route: 048
  2. TICLOPIDINE (TICLOPIDINE) [Suspect]
     Indication: THROMBOSIS PROPHYLAXIS
     Dosage: ORAL
     Route: 048
     Dates: start: 20060718, end: 20060822
  3. ISOSORBIDE MONONITRATE [Suspect]
     Dosage: ORAL
     Route: 048
  4. ASPIRIN [Suspect]
     Dosage: 100 MG
  5. OLMESARTAN MEDOXOMIL (OLMESARTAN MEDOXOMIL) [Suspect]
  6. TAMSULOSIN HCI (TAMSULOSIN HCI) [Suspect]
  7. AMANTADINE HCL [Suspect]
  8. ALPHA-1 PROTEINASE INHIBI (ALPHA-1 PROTEINASE INHIBI) [Suspect]
  9. CHLORMADINONE ACETATE TAB [Suspect]

REACTIONS (3)
  - ACUTE MYOCARDIAL INFARCTION [None]
  - ALANINE AMINOTRANSFERASE INCREASED [None]
  - LIVER DISORDER [None]
